FAERS Safety Report 21707300 (Version 1)
Quarter: 2022Q4

REPORT INFORMATION
  Report Type: Report from Study
  Country: CA (occurrence: CA)
  Receive Date: 20221209
  Receipt Date: 20221209
  Transmission Date: 20230113
  Serious: Yes (Other)
  Sender: FDA-Public Use
  Company Number: CA-ABBVIE-4229316

PATIENT
  Age: 44 Year
  Sex: Male
  Weight: 90.3 kg

DRUGS (15)
  1. UPADACITINIB [Suspect]
     Active Substance: UPADACITINIB
     Indication: Dermatitis atopic
     Dosage: END DATE-2022
     Route: 048
     Dates: start: 20220404
  2. DERMA-SMOOTHE/FS [Concomitant]
     Active Substance: FLUOCINOLONE ACETONIDE
     Indication: Impetigo
     Route: 061
     Dates: start: 20220209
  3. DESONIDE [Concomitant]
     Active Substance: DESONIDE
     Indication: Dermatitis atopic
     Dosage: 1 APPLICATION
     Route: 061
     Dates: start: 20220209
  4. HYDROXYZINE [Concomitant]
     Active Substance: HYDROXYZINE HYDROCHLORIDE
     Indication: Dermatitis atopic
     Dosage: 25 TO 50MG AS REQUIRED
     Route: 048
     Dates: start: 20221006
  5. TOBRADEX [Concomitant]
     Active Substance: DEXAMETHASONE\TOBRAMYCIN
     Indication: Chalazion
     Route: 047
     Dates: start: 20220716
  6. COSMETICS [Concomitant]
     Active Substance: COSMETICS
     Indication: Chalazion
     Dosage: 1 APPLICATION
     Route: 061
     Dates: start: 20220716
  7. DESONIDE [Concomitant]
     Active Substance: DESONIDE
     Indication: Impetigo
     Dosage: 1 APPLICATION
     Route: 061
     Dates: start: 20220829
  8. PREDNISONE [Concomitant]
     Active Substance: PREDNISONE
     Indication: Impetigo
     Route: 048
     Dates: start: 20221028, end: 20221101
  9. PREDNISONE [Concomitant]
     Active Substance: PREDNISONE
     Indication: Impetigo
     Route: 048
     Dates: start: 20221102, end: 20221106
  10. PREDNISONE [Concomitant]
     Active Substance: PREDNISONE
     Indication: Impetigo
     Route: 048
     Dates: start: 20221107, end: 20221111
  11. PREDNISONE [Concomitant]
     Active Substance: PREDNISONE
     Indication: Impetigo
     Route: 048
     Dates: start: 20221112, end: 20221116
  12. PREDNISONE [Concomitant]
     Active Substance: PREDNISONE
     Indication: Impetigo
     Route: 048
     Dates: start: 20221117, end: 20221121
  13. ARISTOCORT [Concomitant]
     Active Substance: TRIAMCINOLONE DIACETATE
     Indication: Impetigo
     Dosage: 1 APPLICATION
     Route: 061
     Dates: start: 20220503
  14. FUCIDIN [Concomitant]
     Active Substance: FUSIDATE SODIUM
     Indication: Impetigo
     Dosage: 1 APPLICATION
     Route: 061
     Dates: start: 20220727
  15. AMOXICILLIN\CLAVULANATE POTASSIUM [Concomitant]
     Active Substance: AMOXICILLIN\CLAVULANATE POTASSIUM
     Indication: Impetigo
     Dosage: DOSAGE: 1 TABLET
     Route: 048
     Dates: start: 20221028, end: 20221117

REACTIONS (1)
  - Cutaneous T-cell lymphoma [Not Recovered/Not Resolved]

NARRATIVE: CASE EVENT DATE: 20221104
